FAERS Safety Report 6466061-3 (Version None)
Quarter: 2009Q4

REPORT INFORMATION
  Report Type: 
  Country: None (occurrence: None)
  Receive Date: 20091201
  Receipt Date: 20091201
  Transmission Date: 20100525
  Serious: Yes (Disabling)
  Sender: FDA-Public Use
  Company Number: None

PATIENT
  Sex: Female
  Weight: 66.6788 kg

DRUGS (2)
  1. VYTORIN [Suspect]
     Indication: BLOOD CHOLESTEROL
     Dosage: 10-20 MG ONCE DAILY
     Dates: start: 20050101, end: 20070101
  2. VYTORIN [Suspect]
     Indication: HYPERTENSION
     Dosage: 10-20 MG ONCE DAILY
     Dates: start: 20050101, end: 20070101

REACTIONS (6)
  - BACK PAIN [None]
  - DIZZINESS [None]
  - GAIT DISTURBANCE [None]
  - IMMUNE SYSTEM DISORDER [None]
  - MYALGIA [None]
  - PAIN IN EXTREMITY [None]
